FAERS Safety Report 12217713 (Version 3)
Quarter: 2016Q2

REPORT INFORMATION
  Report Type: Spontaneous
  Country: SG (occurrence: SG)
  Receive Date: 20160329
  Receipt Date: 20160412
  Transmission Date: 20160815
  Serious: Yes (Hospitalization)
  Sender: FDA-Public Use
  Company Number: SG-SUN PHARMACEUTICAL INDUSTRIES LTD-2016RR-113874

PATIENT

DRUGS (4)
  1. XELODA [Concomitant]
     Active Substance: CAPECITABINE
     Indication: METASTASES TO LUNG
     Dosage: 6 CYCLES
     Route: 048
  2. XELOX [Suspect]
     Active Substance: CAPECITABINE\OXALIPLATIN
     Indication: CHEMOTHERAPY
     Dosage: UNK
     Route: 042
  3. XELODA [Concomitant]
     Active Substance: CAPECITABINE
     Indication: METASTASES TO LIVER
     Dosage: 6 CYCLES
     Route: 048
  4. CAPECITABINE. [Concomitant]
     Active Substance: CAPECITABINE
     Indication: CHEMOTHERAPY
     Dosage: UNK
     Route: 048

REACTIONS (1)
  - Posterior reversible encephalopathy syndrome [Recovered/Resolved]

NARRATIVE: CASE EVENT DATE: 201007
